FAERS Safety Report 7654067-8 (Version None)
Quarter: 2011Q3

REPORT INFORMATION
  Report Type: 
  Country: None (occurrence: None)
  Receive Date: 20110728
  Receipt Date: 20110416
  Transmission Date: 20111222
  Serious: Yes (Hospitalization)
  Sender: FDA-Public Use
  Company Number: 2011SP022421

PATIENT
  Age: 56 Year
  Sex: Male

DRUGS (2)
  1. INTRON A [Suspect]
     Indication: HEPATITIS C
     Dates: start: 20100101, end: 20100101
  2. PROGRAF [Concomitant]

REACTIONS (3)
  - FATIGUE [None]
  - PANCREATITIS [None]
  - PALPITATIONS [None]
